FAERS Safety Report 13553285 (Version 1)
Quarter: 2017Q2

REPORT INFORMATION
  Report Type: Spontaneous
  Country: US (occurrence: US)
  Receive Date: 20170516
  Receipt Date: 20170516
  Transmission Date: 20170830
  Serious: Yes (Other)
  Sender: FDA-Public Use
  Company Number: None

PATIENT
  Age: 49 Year
  Sex: Female
  Weight: 126 kg

DRUGS (2)
  1. XOLAIR [Suspect]
     Active Substance: OMALIZUMAB
     Indication: MULTIPLE ALLERGIES
     Dosage: QUANTITY:2 INJECTION(S);?
  2. XOLAIR [Suspect]
     Active Substance: OMALIZUMAB
     Indication: ASTHMA
     Dosage: QUANTITY:2 INJECTION(S);?

REACTIONS (2)
  - Dizziness [None]
  - Throat tightness [None]

NARRATIVE: CASE EVENT DATE: 20170516
